FAERS Safety Report 16664509 (Version 7)
Quarter: 2020Q1

REPORT INFORMATION
  Report Type: Report from Study
  Country: GB (occurrence: GB)
  Receive Date: 20190802
  Receipt Date: 20200205
  Transmission Date: 20200409
  Serious: Yes (Death, Hospitalization)
  Sender: FDA-Public Use
  Company Number: PHHY2019GB179668

PATIENT
  Age: 70 Year
  Sex: Male

DRUGS (3)
  1. SANDOSTATIN LAR DEPOT [Suspect]
     Active Substance: OCTREOTIDE ACETATE
     Dosage: 30 MG, Q3W
     Route: 030
  2. SANDOSTATIN LAR DEPOT [Suspect]
     Active Substance: OCTREOTIDE ACETATE
     Dosage: 30 MG, Q3W
     Route: 030
     Dates: start: 20190822
  3. SANDOSTATIN LAR DEPOT [Suspect]
     Active Substance: OCTREOTIDE ACETATE
     Indication: NEUROENDOCRINE TUMOUR
     Dosage: 30 MG, Q3W
     Route: 030
     Dates: start: 2012

REACTIONS (19)
  - Lethargy [Not Recovered/Not Resolved]
  - Atrial fibrillation [Recovering/Resolving]
  - Asthenia [Recovering/Resolving]
  - Fatigue [Recovering/Resolving]
  - Needle issue [Recovered/Resolved]
  - Death [Fatal]
  - Liver disorder [Unknown]
  - Liver function test abnormal [Not Recovered/Not Resolved]
  - Blood bilirubin abnormal [Not Recovered/Not Resolved]
  - Encephalopathy [Recovering/Resolving]
  - Anaemia [Unknown]
  - Mobility decreased [Not Recovered/Not Resolved]
  - Fluid overload [Recovering/Resolving]
  - Peripheral swelling [Recovered/Resolved]
  - Colitis ischaemic [Recovering/Resolving]
  - Somnolence [Recovering/Resolving]
  - Blood albumin decreased [Recovered/Resolved]
  - Jaundice cholestatic [Recovering/Resolving]
  - Delirium [Recovering/Resolving]

NARRATIVE: CASE EVENT DATE: 20190729
